FAERS Safety Report 9312635 (Version 2)
Quarter: 2013Q2

REPORT INFORMATION
  Report Type: Spontaneous
  Country: FR (occurrence: FR)
  Receive Date: 20130528
  Receipt Date: 20130628
  Transmission Date: 20140414
  Serious: Yes (Other)
  Sender: FDA-Public Use
  Company Number: FR-BRISTOL-MYERS SQUIBB COMPANY-18924456

PATIENT
  Age: 75 Year
  Sex: Male
  Weight: 70 kg

DRUGS (4)
  1. TAXOL [Suspect]
     Indication: METASTASES TO PERITONEUM
     Dates: start: 20130204
  2. TAXOL [Suspect]
     Indication: SQUAMOUS CELL CARCINOMA OF LUNG
     Dates: start: 20130204
  3. CARBOPLATINE [Suspect]
     Indication: LUNG NEOPLASM MALIGNANT
     Dates: start: 2013
  4. CARBOPLATINE [Suspect]
     Indication: METASTASES TO PERITONEUM
     Dates: start: 2013

REACTIONS (3)
  - Malignant neoplasm progression [Unknown]
  - Tetany [Unknown]
  - Hypersensitivity [Recovered/Resolved]
